FAERS Safety Report 8361206-2 (Version None)
Quarter: 2012Q2

REPORT INFORMATION
  Report Type: 
  Country: None (occurrence: None)
  Receive Date: 20120515
  Receipt Date: 20110714
  Transmission Date: 20120825
  Serious: No
  Sender: FDA-Public Use
  Company Number: US-ALEXION-A201101078

PATIENT
  Sex: Male

DRUGS (2)
  1. SOLIRIS [Suspect]
     Indication: PAROXYSMAL NOCTURNAL HAEMOGLOBINURIA
     Dosage: 900 MG, Q2W
     Route: 042
     Dates: start: 20071112
  2. NAPROXEN (ALEVE) [Concomitant]
     Indication: ARTHRALGIA
     Dosage: UNK, 2-3XWK

REACTIONS (2)
  - HAEMOGLOBIN DECREASED [None]
  - POLYP COLORECTAL [None]
